FAERS Safety Report 4583878-0 (Version None)
Quarter: 2005Q1

REPORT INFORMATION
  Report Type: 
  Country: None (occurrence: None)
  Receive Date: 20050216
  Receipt Date: 20041104
  Transmission Date: 20050727
  Serious: No
  Sender: FDA-Public Use
  Company Number: US-GLAXOSMITHKLINE-A0532710A

PATIENT
  Age: 49 Year
  Sex: Female

DRUGS (10)
  1. LOTRONEX [Suspect]
     Indication: IRRITABLE BOWEL SYNDROME
     Dosage: 1MG TWICE PER DAY
     Route: 048
     Dates: start: 20030901
  2. TINCTURE OF OPIUM [Concomitant]
  3. VERAPAMIL [Concomitant]
  4. KLONOPIN [Concomitant]
  5. ADVAIR DISKUS 100/50 [Concomitant]
  6. EFFEXOR [Concomitant]
  7. AMANTADINE [Concomitant]
  8. PHENERGAN [Concomitant]
  9. VICODIN [Concomitant]
  10. TOPAMAX [Concomitant]

REACTIONS (3)
  - BACK PAIN [None]
  - BLOOD CREATINE PHOSPHOKINASE INCREASED [None]
  - MYOSITIS [None]
